FAERS Safety Report 18288965 (Version 3)
Quarter: 2021Q1

REPORT INFORMATION
  Report Type: Spontaneous
  Country: US (occurrence: US)
  Receive Date: 20200921
  Receipt Date: 20210331
  Transmission Date: 20210419
  Serious: Yes (Death)
  Sender: FDA-Public Use
  Company Number: US-PFIZER INC-2020007998

PATIENT
  Age: 93 Year
  Sex: Female

DRUGS (2)
  1. LYRICA [Suspect]
     Active Substance: PREGABALIN
     Dosage: 50 MG, 2X/DAY
     Route: 048
  2. LYRICA [Suspect]
     Active Substance: PREGABALIN
     Indication: POST LAMINECTOMY SYNDROME
     Dosage: 50 MG, 3X/DAY
     Route: 048

REACTIONS (5)
  - Sciatica [Unknown]
  - Back pain [Not Recovered/Not Resolved]
  - Death [Fatal]
  - Memory impairment [Unknown]
  - Pain in extremity [Unknown]
